FAERS Safety Report 7105136-2 (Version None)
Quarter: 2010Q4

REPORT INFORMATION
  Report Type: 
  Country: None (occurrence: None)
  Receive Date: 20101116
  Receipt Date: 20101104
  Transmission Date: 20110411
  Serious: Yes (Other)
  Sender: FDA-Public Use
  Company Number: JP-JNJFOC-20100506428

PATIENT
  Age: 31 Year
  Sex: Female
  Weight: 97 kg

DRUGS (9)
  1. REMICADE [Suspect]
     Indication: PUSTULAR PSORIASIS
     Route: 042
  2. REMICADE [Suspect]
     Route: 042
  3. CICLOSPORIN [Concomitant]
     Indication: PUSTULAR PSORIASIS
     Route: 048
  4. OXAROL [Concomitant]
     Indication: PUSTULAR PSORIASIS
     Route: 031
  5. DERMOVATE [Concomitant]
     Indication: PUSTULAR PSORIASIS
     Route: 031
  6. HYDROCORTISONE BUTYRATE [Concomitant]
     Indication: PUSTULAR PSORIASIS
     Route: 031
  7. BASEN [Concomitant]
     Route: 048
  8. GLYCORAN [Concomitant]
     Route: 048
  9. LIPITOR [Concomitant]
     Route: 048

REACTIONS (6)
  - ANAPHYLACTOID REACTION [None]
  - CHEST DISCOMFORT [None]
  - DYSPNOEA [None]
  - INFUSION RELATED REACTION [None]
  - MALAISE [None]
  - OXYGEN SATURATION DECREASED [None]
